FAERS Safety Report 13693242 (Version 1)
Quarter: 2017Q2

REPORT INFORMATION
  Report Type: Spontaneous
  Country: US (occurrence: US)
  Receive Date: 20170627
  Receipt Date: 20170627
  Transmission Date: 20170830
  Serious: Yes (Hospitalization, Other)
  Sender: FDA-Public Use
  Company Number: US-APOTEX-2017AP013537

PATIENT
  Age: 30 Year
  Sex: Female

DRUGS (2)
  1. LITHIUM CARBONATE. [Suspect]
     Active Substance: LITHIUM CARBONATE
     Indication: DEPRESSION
     Dosage: UNK
     Route: 065
  2. ALCOHOL. [Suspect]
     Active Substance: ALCOHOL
     Indication: PRODUCT USED FOR UNKNOWN INDICATION
     Route: 065

REACTIONS (14)
  - Overdose [Unknown]
  - Electrocardiogram QT prolonged [Recovered/Resolved]
  - Toxicity to various agents [Recovering/Resolving]
  - Dry skin [Unknown]
  - Stupor [Unknown]
  - Electrocardiogram QRS complex prolonged [Recovered/Resolved]
  - Dysarthria [Unknown]
  - Myoclonus [Unknown]
  - Generalised erythema [Unknown]
  - Muscle twitching [Unknown]
  - Depression [Unknown]
  - Atrioventricular block first degree [Recovered/Resolved]
  - Urinary incontinence [Recovered/Resolved]
  - Breath sounds abnormal [Unknown]
